FAERS Safety Report 4478530-6 (Version None)
Quarter: 2004Q4

REPORT INFORMATION
  Report Type: 
  Country: None (occurrence: None)
  Receive Date: 20041018
  Receipt Date: 20041018
  Transmission Date: 20050328
  Serious: No
  Sender: FDA-Public Use
  Company Number: None

PATIENT
  Age: 50 Year
  Sex: Female
  Weight: 81.6475 kg

DRUGS (4)
  1. VIOXX [Suspect]
     Indication: ARTHRALGIA
     Dosage: 1 DAILY ORAL
     Route: 048
  2. VIOXX [Suspect]
     Indication: ARTHRITIS
     Dosage: 1 DAILY ORAL
     Route: 048
  3. VIOXX [Suspect]
     Indication: POST PROCEDURAL PAIN
     Dosage: 1 DAILY ORAL
     Route: 048
  4. VIOXX [Suspect]
     Indication: SPINAL DISORDER
     Dosage: 1 DAILY ORAL
     Route: 048

REACTIONS (2)
  - AORTIC ATHEROSCLEROSIS [None]
  - BLOOD PRESSURE ABNORMAL [None]
